FAERS Safety Report 6547433-5 (Version None)
Quarter: 2010Q1

REPORT INFORMATION
  Report Type: 
  Country: None (occurrence: None)
  Receive Date: 20100122
  Receipt Date: 20100120
  Transmission Date: 20100710
  Serious: Yes (Death)
  Sender: FDA-Public Use
  Company Number: PHHY2010HU03148

PATIENT
  Sex: Female
  Weight: 48 kg

DRUGS (1)
  1. CGS 20267 T30748+FCTAB [Suspect]
     Indication: BREAST CANCER
     Dosage: UNK
     Route: 048
     Dates: start: 20060825, end: 20090921

REACTIONS (1)
  - DEATH [None]
